FAERS Safety Report 23323577 (Version 1)
Quarter: 2023Q4

REPORT INFORMATION
  Report Type: Spontaneous
  Country: US (occurrence: None)
  Receive Date: 20231220
  Receipt Date: 20231220
  Transmission Date: 20240110
  Serious: No
  Sender: FDA-Public Use
  Company Number: US-ROCHE-3377277

PATIENT
  Sex: Male

DRUGS (4)
  1. RITUXAN [Suspect]
     Active Substance: RITUXIMAB
     Indication: Multiple sclerosis
     Dosage: FORM STRENGTH: 10 MG/ML
     Route: 041
     Dates: start: 20230606
  2. LOSARTAN [Concomitant]
     Active Substance: LOSARTAN
  3. XARELTO [Concomitant]
     Active Substance: RIVAROXABAN
  4. GAMUNEX [Concomitant]
     Active Substance: HUMAN IMMUNOGLOBULIN G
     Route: 042

REACTIONS (2)
  - Blood potassium increased [Unknown]
  - Off label use [Unknown]
